APPROVED DRUG PRODUCT: ZOLPIDEM TARTRATE
Active Ingredient: ZOLPIDEM TARTRATE
Strength: 10MG
Dosage Form/Route: TABLET;ORAL
Application: A077985 | Product #002
Applicant: SENORES PHARMACEUTICALS INC
Approved: Apr 23, 2007 | RLD: No | RS: No | Type: DISCN